FAERS Safety Report 7972668-4 (Version None)
Quarter: 2011Q4

REPORT INFORMATION
  Report Type: 
  Country: None (occurrence: None)
  Receive Date: 20111209
  Receipt Date: 20111129
  Transmission Date: 20120403
  Serious: Yes (Other)
  Sender: FDA-Public Use
  Company Number: 1000025861

PATIENT
  Sex: Female

DRUGS (1)
  1. VIIBRYD [Suspect]
     Dosage: 10;20;40 MG (10;20;40 MG, 1 IN 1 D) ORAL
     Route: 048

REACTIONS (2)
  - SUICIDAL IDEATION [None]
  - DRUG ADMINISTRATION ERROR [None]
